FAERS Safety Report 19651157 (Version 2)
Quarter: 2021Q3

REPORT INFORMATION
  Report Type: Spontaneous
  Country: US (occurrence: US)
  Receive Date: 20210803
  Receipt Date: 20210905
  Transmission Date: 20211014
  Serious: No
  Sender: FDA-Public Use
  Company Number: US-GLAXOSMITHKLINE-US2021163872

PATIENT
  Sex: Male

DRUGS (1)
  1. FLOVENT HFA [Suspect]
     Active Substance: FLUTICASONE PROPIONATE
     Indication: PRODUCT USED FOR UNKNOWN INDICATION
     Dosage: UNK, 110MCG INH 134A DC 120D
     Route: 055

REACTIONS (6)
  - Pyrexia [Recovered/Resolved]
  - Tremor [Recovered/Resolved]
  - Cough [Recovered/Resolved]
  - Product complaint [Unknown]
  - Heart rate increased [Recovered/Resolved]
  - Musculoskeletal discomfort [Recovered/Resolved]
